FAERS Safety Report 8321129-1 (Version None)
Quarter: 2012Q2

REPORT INFORMATION
  Report Type: 
  Country: None (occurrence: None)
  Receive Date: 20120430
  Receipt Date: 20120419
  Transmission Date: 20120825
  Serious: Yes (Other)
  Sender: FDA-Public Use
  Company Number: NL-JNJFOC-20120405893

PATIENT
  Sex: Male
  Weight: 76 kg

DRUGS (5)
  1. IBUPROFEN [Concomitant]
     Indication: SWELLING
     Route: 065
  2. CISORDINOL [Concomitant]
     Route: 065
  3. PALIPERIDONE [Suspect]
     Indication: PRODUCT USED FOR UNKNOWN INDICATION
     Dosage: SINCE 2.5 WEEKS
     Route: 030
  4. RISPERDAL CONSTA [Suspect]
     Indication: ILL-DEFINED DISORDER
     Route: 030
     Dates: start: 20100501
  5. PALIPERIDONE [Suspect]
     Route: 030

REACTIONS (7)
  - OEDEMA [None]
  - INSOMNIA [None]
  - RESPIRATORY DISORDER [None]
  - PHARYNGITIS [None]
  - FATIGUE [None]
  - SUFFOCATION FEELING [None]
  - NASOPHARYNGITIS [None]
